FAERS Safety Report 20389147 (Version 1)
Quarter: 2022Q1

REPORT INFORMATION
  Report Type: Other
  Country: CN (occurrence: None)
  Receive Date: 20220128
  Receipt Date: 20220128
  Transmission Date: 20220424
  Serious: Yes (Other)
  Sender: FDA-Public Use
  Company Number: CN-ROCHE-2135607

PATIENT
  Age: 75 Year
  Sex: Female
  Weight: 56 kg

DRUGS (1)
  1. AVASTIN [Suspect]
     Active Substance: BEVACIZUMAB
     Indication: Colorectal cancer
     Route: 041
     Dates: start: 20170821

REACTIONS (8)
  - Nail discolouration [Unknown]
  - Discomfort [Unknown]
  - Skin discolouration [Unknown]
  - Pain in extremity [Unknown]
  - Movement disorder [Unknown]
  - Pain in extremity [Unknown]
  - Pyrexia [Unknown]
  - Ascites [Recovered/Resolved]

NARRATIVE: CASE EVENT DATE: 20211001
